FAERS Safety Report 8066669-8 (Version None)
Quarter: 2012Q1

REPORT INFORMATION
  Report Type: 
  Country: None (occurrence: None)
  Receive Date: 20120124
  Receipt Date: 20120120
  Transmission Date: 20120608
  Serious: Yes (Death)
  Sender: FDA-Public Use
  Company Number: PHHY2012JP005555

PATIENT
  Sex: Male

DRUGS (10)
  1. SOLU-MEDROL [Concomitant]
     Indication: RENAL TRANSPLANT
     Dosage: 500 MG, UNK
     Route: 042
     Dates: start: 20100324, end: 20100405
  2. NEORAL [Suspect]
     Indication: RENAL TRANSPLANT
     Dosage: BETWEEN 125 AND 250 MG/DAY
     Route: 048
     Dates: start: 20100310, end: 20100322
  3. SIMULECT [Concomitant]
     Dosage: 20 MG, UNK
     Route: 042
     Dates: start: 20100327
  4. MYCOPHENOLATE MOFETIL (CELLCEPT) [Concomitant]
     Indication: RENAL TRANSPLANT
     Dosage: 1000 MG, UNK
     Route: 048
     Dates: start: 20100310
  5. MEDROL [Concomitant]
     Indication: RENAL TRANSPLANT
     Dosage: 32 MG, UNK
     Route: 048
     Dates: start: 20100406
  6. SANDIMMUNE [Suspect]
     Indication: RENAL TRANSPLANT
     Dosage: 75 MG, UNK
     Route: 042
     Dates: start: 20100323, end: 20100323
  7. SIMULECT [Concomitant]
     Indication: RENAL TRANSPLANT
     Dosage: 20 MG, UNK
     Route: 042
     Dates: start: 20100323
  8. NEORAL [Suspect]
     Dosage: 150-250 MG/DAY
     Route: 048
     Dates: start: 20100324
  9. MYCOPHENOLATE MOFETIL (CELLCEPT) [Concomitant]
     Dosage: 1500 MG, UNK
     Route: 048
     Dates: start: 20110302
  10. RITUXAN [Concomitant]
     Dosage: 500 MG, UNK
     Route: 042
     Dates: start: 20100309, end: 20100309

REACTIONS (1)
  - DEATH [None]
